FAERS Safety Report 10082057 (Version 1)
Quarter: 2014Q2

REPORT INFORMATION
  Report Type: Spontaneous
  Country: RO (occurrence: RO)
  Receive Date: 20140416
  Receipt Date: 20140416
  Transmission Date: 20141212
  Serious: Yes (Hospitalization)
  Sender: FDA-Public Use
  Company Number: RO-BAYER-2014-056841

PATIENT
  Age: 61 Year
  Sex: Female

DRUGS (1)
  1. ACETYLSALICYLIC ACID (} 100 MG) [Suspect]
     Dosage: INTENTIONAL OVERDOSE

REACTIONS (2)
  - Intentional overdose [None]
  - Suicide attempt [None]
